FAERS Safety Report 9899954 (Version 1)
Quarter: 2014Q1

REPORT INFORMATION
  Report Type: Not Available
  Country: US (occurrence: US)
  Receive Date: 20140214
  Receipt Date: 20140214
  Transmission Date: 20141002
  Serious: No
  Sender: FDA-Public Use
  Company Number: US-VIVUS-2013V1000841

PATIENT
  Sex: Male
  Weight: 90.8 kg

DRUGS (4)
  1. QSYMIA 15MG/92MG [Suspect]
     Indication: WEIGHT DECREASED
     Dosage: STARTED ABOUT 6 WEEKS FROM 12 NOV 2013
     Route: 048
     Dates: start: 2013
  2. QSYMIA 11.25MG/69MG [Suspect]
     Indication: WEIGHT DECREASED
     Route: 048
     Dates: start: 2013, end: 2013
  3. QSYMIA 7.5MG/46MG [Suspect]
     Indication: WEIGHT DECREASED
     Dosage: STARTED THIS DOSE IMMEDIATELY AFTER FINISHING QSYMIA 3.75MG/23MG
     Route: 048
     Dates: start: 2013, end: 2013
  4. QSYMIA 3.75MG/23MG [Suspect]
     Indication: WEIGHT DECREASED
     Dosage: STARTED ABOUT 6-8 MONTHS FROM 12 NOV 2013
     Route: 048
     Dates: start: 2013, end: 2013

REACTIONS (1)
  - Prostatic specific antigen increased [Not Recovered/Not Resolved]
